FAERS Safety Report 11387693 (Version 1)
Quarter: 2015Q3

REPORT INFORMATION
  Report Type: Spontaneous
  Country: DE (occurrence: DE)
  Receive Date: 20150817
  Receipt Date: 20150817
  Transmission Date: 20151125
  Serious: Yes (Death, Other)
  Sender: FDA-Public Use
  Company Number: DE-PFIZER INC-2015262512

PATIENT
  Sex: Male

DRUGS (1)
  1. CARDULAR PP [Suspect]
     Active Substance: DOXAZOSIN MESYLATE
     Dosage: UNK

REACTIONS (2)
  - Death [Fatal]
  - Dependence [Unknown]

NARRATIVE: CASE EVENT DATE: 1980
